FAERS Safety Report 9507862 (Version 1)
Quarter: 2013Q3

REPORT INFORMATION
  Report Type: Spontaneous
  Country: US (occurrence: None)
  Receive Date: 20130906
  Receipt Date: 20130906
  Transmission Date: 20140515
  Serious: Yes (Other)
  Sender: FDA-Public Use
  Company Number: None

PATIENT
  Age: 57 Year
  Sex: Female
  Weight: 70 kg

DRUGS (12)
  1. ASACOL [Suspect]
     Indication: COLITIS ULCERATIVE
     Dosage: ASACOL HD DR 800MG ONE 3 TIMES A DA ORAL
     Route: 048
     Dates: start: 20130609
  2. LISINOPRIL [Concomitant]
  3. FLUOXETINE [Concomitant]
  4. ALLEGRA [Suspect]
  5. SIMVASTIN [Concomitant]
  6. CALCIUM WITH VITAMIN D [Concomitant]
  7. ESTER C [Concomitant]
  8. UBIQUINOL [Concomitant]
  9. KRILL OIL [Concomitant]
  10. VITAMIN B6 [Concomitant]
  11. ZINC [Concomitant]
  12. ALIGN [Concomitant]

REACTIONS (6)
  - White blood cell count increased [None]
  - Neutrophil count increased [None]
  - Abdominal pain lower [None]
  - Fatigue [None]
  - Diarrhoea haemorrhagic [None]
  - Colitis ulcerative [None]
